FAERS Safety Report 20036405 (Version 1)
Quarter: 2021Q4

REPORT INFORMATION
  Report Type: Spontaneous
  Country: KR (occurrence: KR)
  Receive Date: 20211105
  Receipt Date: 20211105
  Transmission Date: 20220304
  Serious: Yes (Other)
  Sender: FDA-Public Use
  Company Number: KR-ADVANZ PHARMA-202110007326

PATIENT

DRUGS (1)
  1. ALFUZOSIN [Suspect]
     Active Substance: ALFUZOSIN
     Indication: Product used for unknown indication
     Dosage: UNK (XATRAL XL TABLET)
     Route: 048
     Dates: start: 20211019

REACTIONS (4)
  - Abdominal discomfort [Not Recovered/Not Resolved]
  - Somnolence [Not Recovered/Not Resolved]
  - Syncope [Recovered/Resolved]
  - Nausea [Not Recovered/Not Resolved]

NARRATIVE: CASE EVENT DATE: 20211001
